FAERS Safety Report 15928681 (Version 1)
Quarter: 2019Q1

REPORT INFORMATION
  Report Type: Spontaneous
  Country: US (occurrence: US)
  Receive Date: 20190206
  Receipt Date: 20190206
  Transmission Date: 20190417
  Serious: No
  Sender: FDA-Public Use
  Company Number: US-PFIZER INC-2016583029

PATIENT
  Age: 57 Year
  Sex: Female

DRUGS (38)
  1. TYLENOL [Concomitant]
     Active Substance: ACETAMINOPHEN
     Indication: PAIN
     Dosage: 1000 MG, AS NEEDED [EVERY 6HOURS]
     Route: 048
  2. PRILOSEC [Concomitant]
     Active Substance: OMEPRAZOLE MAGNESIUM
     Dosage: 40 MG, DAILY
     Route: 048
     Dates: start: 20141016
  3. VERAMYST [Concomitant]
     Active Substance: FLUTICASONE FUROATE
     Dosage: 2 DF, DAILY [INSTIL TWO SPRAYS NASALLY ]
     Route: 045
     Dates: start: 20140710
  4. PERCOCET [Concomitant]
     Active Substance: ACETAMINOPHEN\OXYCODONE HYDROCHLORIDE
     Indication: BACK PAIN
     Dosage: UNK, AS NEEDED [OXYCODONE: 5MG; APAP : 325MG]
     Route: 048
     Dates: start: 20131127
  5. OCUVITE [Concomitant]
     Active Substance: VITAMINS
     Dosage: 1 DF, DAILY
     Route: 048
  6. ZYLOPRIM [Concomitant]
     Active Substance: ALLOPURINOL
     Dosage: 100 MG, 1X/DAY [NIGHTLY]
     Route: 048
  7. BIOTIN [Concomitant]
     Active Substance: BIOTIN
     Dosage: 1000 UG, UNK
     Route: 048
  8. TOPROL XL [Concomitant]
     Active Substance: METOPROLOL SUCCINATE
     Dosage: 37.5 MG, DAILY (TAKE 1.5 TABLETS)
     Route: 048
     Dates: start: 20161101
  9. LEVOTHROID [Concomitant]
     Active Substance: LEVOTHYROXINE SODIUM
     Dosage: 175 UG, DAILY
     Route: 048
     Dates: start: 20161031
  10. LOVAZA [Concomitant]
     Active Substance: OMEGA-3-ACID ETHYL ESTERS
     Dosage: 2 G, 2X/DAY
     Route: 048
  11. ARAVA [Concomitant]
     Active Substance: LEFLUNOMIDE
     Dosage: 20 MG, DAILY
     Route: 048
  12. DELTASONE [Concomitant]
     Active Substance: PREDNISONE
     Indication: ARTHRITIS
     Dosage: 7.5 MG, AS NEEDED
     Route: 048
  13. PERCOCET [Concomitant]
     Active Substance: ACETAMINOPHEN\OXYCODONE HYDROCHLORIDE
     Indication: PAIN
  14. LIORESAL [Concomitant]
     Active Substance: BACLOFEN
     Dosage: 40 MG, DAILY [1 TABLET BY MOUTH 3 TIMES DAILY. 10 MG IN THE AM, 10 MG AFTERNOON, 20 MG IN PM]
     Route: 048
     Dates: start: 20130919
  15. LYRICA [Suspect]
     Active Substance: PREGABALIN
     Indication: PAIN
     Dosage: 150 MG, 1X/DAY [NIGHTLY] [EVERY NIGHT AT BEDTIME]
     Route: 048
  16. KLONOPIN [Concomitant]
     Active Substance: CLONAZEPAM
     Indication: ANXIETY
     Dosage: 0.5 MG, AS NEEDED [2 TIMES DAILY ]
     Route: 048
     Dates: start: 20160330
  17. TUMS [Concomitant]
     Active Substance: CALCIUM CARBONATE
     Dosage: 2 DF, DAILY [TAKE 2 TABLETS BY MOUTH DAILY (AT NOON)]
     Route: 048
  18. LASIX [Concomitant]
     Active Substance: FUROSEMIDE
     Dosage: 80 MG, DAILY [2 TABS]
     Route: 048
  19. PLAQUENIL [Concomitant]
     Active Substance: HYDROXYCHLOROQUINE SULFATE
     Dosage: 100 MG, 2X/DAY
     Route: 048
  20. ROCALTROL [Concomitant]
     Active Substance: CALCITRIOL
     Dosage: 0.25 UG, DAILY
     Route: 048
     Dates: start: 20161103
  21. SIMPONI ARIA [Concomitant]
     Active Substance: GOLIMUMAB
     Dosage: 1 DF, UNK [INJECT 1 DOSE INTO THE VEIN EVERY 2 MONTHS]
     Route: 042
  22. VENTOLIN HFA [Concomitant]
     Active Substance: ALBUTEROL SULFATE
     Dosage: 2 DF, AS NEEDED [INHALE 2 PUFFS INTO THE LUNGS EVERY 4 HOURS ]
     Route: 055
     Dates: start: 20130502
  23. PROLIA [Concomitant]
     Active Substance: DENOSUMAB
     Dosage: 1 DF, UNK [INJECT 1 DOSE INTO THE SKIN EVERY 6 MONTHS]
     Route: 058
  24. CRESTOR [Concomitant]
     Active Substance: ROSUVASTATIN CALCIUM
     Dosage: 10 MG, DAILY
     Route: 048
     Dates: start: 20160504
  25. DULERA [Concomitant]
     Active Substance: FORMOTEROL FUMARATE DIHYDRATE\MOMETASONE FUROATE
     Dosage: UNK, 2X/DAY [MOMETASONE FUROATE: 200 MCG; FORMOTEROL FUMARATE: 5MCG] [INHALE 2 PUFFS INTO LUNGS]
     Dates: start: 20150514
  26. MIRALAX [Concomitant]
     Active Substance: POLYETHYLENE GLYCOL 3350
     Dosage: 17 G, DAILY
     Route: 048
     Dates: start: 20150417
  27. ASTELIN [Concomitant]
     Active Substance: AZELASTINE HYDROCHLORIDE
     Dosage: 2 DF, 3X/DAY [USE ONE SPRAY IN EACH NOSTRIL ]
     Route: 045
     Dates: start: 20140601
  28. ALLEGRA [Concomitant]
     Active Substance: FEXOFENADINE HYDROCHLORIDE
     Dosage: 180 MG, DAILY
     Route: 048
  29. MIDAMOR [Concomitant]
     Active Substance: AMILORIDE HYDROCHLORIDE
     Dosage: 2.5 MG, DAILY [TAKE 0.5 TABLETS]
     Route: 048
     Dates: start: 20160812
  30. SINGULAIR [Concomitant]
     Active Substance: MONTELUKAST SODIUM
     Dosage: 10 MG, 1X/DAY [EVERY EVENING]
     Route: 048
     Dates: start: 20150318
  31. ESTRACE [Concomitant]
     Active Substance: ESTRADIOL
     Dosage: 2 G, DAILY
     Route: 067
     Dates: start: 20141006
  32. PERCOCET [Concomitant]
     Active Substance: ACETAMINOPHEN\OXYCODONE HYDROCHLORIDE
     Indication: RADICULOPATHY
  33. K-DUR [Concomitant]
     Active Substance: POTASSIUM CHLORIDE
     Dosage: 40 MEQ, DAILY [2 TABS]
     Route: 048
  34. VITAMIN D3 [Concomitant]
     Active Substance: CHOLECALCIFEROL
     Dosage: 1000 IU, 2X/DAY
     Route: 048
  35. WELLBUTRIN XL [Concomitant]
     Active Substance: BUPROPION HYDROCHLORIDE
     Dosage: 300 MG, DAILY
     Route: 048
     Dates: start: 20161101
  36. SYNTHROID [Concomitant]
     Active Substance: LEVOTHYROXINE SODIUM
     Dosage: 175 UG, DAILY [BEFORE BREAKFAST]
     Route: 048
     Dates: start: 20161031
  37. PROBIOTIC ACIDOPHILUS [LACTOBACILLUS ACIDOPHILUS] [Concomitant]
     Dosage: 1 DF, DAILY
     Route: 048
  38. LINZESS [Concomitant]
     Active Substance: LINACLOTIDE
     Dosage: 145 UG, DAILY
     Route: 048
     Dates: start: 20150417

REACTIONS (1)
  - Hypoaesthesia [Unknown]
